FAERS Safety Report 10615716 (Version 8)
Quarter: 2015Q3

REPORT INFORMATION
  Report Type: Spontaneous
  Country: US (occurrence: US)
  Receive Date: 20141201
  Receipt Date: 20150709
  Transmission Date: 20151125
  Serious: Yes (Hospitalization, Disabling, Other)
  Sender: FDA-Public Use
  Company Number: US-009507513-1204USA04493

PATIENT
  Sex: Male
  Weight: 96.3 kg

DRUGS (1)
  1. PROPECIA [Suspect]
     Active Substance: FINASTERIDE
     Indication: ALOPECIA
     Dosage: 1 MG, QD
     Route: 048
     Dates: start: 2003, end: 20100912

REACTIONS (44)
  - Ejaculation disorder [Not Recovered/Not Resolved]
  - Arteriosclerosis [Unknown]
  - Sleep apnoea syndrome [Unknown]
  - Hyperlipidaemia [Unknown]
  - Arthroscopy [Unknown]
  - Adverse event [Unknown]
  - Cognitive disorder [Not Recovered/Not Resolved]
  - Libido decreased [Not Recovered/Not Resolved]
  - Sexual dysfunction [Not Recovered/Not Resolved]
  - Depression [Not Recovered/Not Resolved]
  - Prostatitis [Not Recovered/Not Resolved]
  - Hypothyroidism [Unknown]
  - Vitamin D deficiency [Unknown]
  - Gastrooesophageal reflux disease [Unknown]
  - Ankle operation [Unknown]
  - Diverticulum [Unknown]
  - Goitre [Unknown]
  - Fatigue [Unknown]
  - Sleep apnoea syndrome [Unknown]
  - Colectomy [Unknown]
  - Anxiety [Not Recovered/Not Resolved]
  - Erectile dysfunction [Not Recovered/Not Resolved]
  - Blood testosterone decreased [Unknown]
  - Vein disorder [Unknown]
  - Hypogonadism male [Unknown]
  - Stress [Unknown]
  - Diabetes mellitus [Unknown]
  - Benign prostatic hyperplasia [Unknown]
  - Adverse event [Unknown]
  - Cerebral small vessel ischaemic disease [Unknown]
  - Weight increased [Unknown]
  - Back pain [Unknown]
  - Influenza [Unknown]
  - Ejaculation failure [Not Recovered/Not Resolved]
  - Dysuria [Unknown]
  - Bacterial infection [Unknown]
  - Asthenia [Unknown]
  - Lower urinary tract symptoms [Unknown]
  - Myositis [Unknown]
  - Insomnia [Unknown]
  - Hypertension [Unknown]
  - Hernia [Unknown]
  - Nuclear magnetic resonance imaging abnormal [Unknown]
  - Dermatitis contact [Unknown]

NARRATIVE: CASE EVENT DATE: 2008
